FAERS Safety Report 23027651 (Version 1)
Quarter: 2023Q4

REPORT INFORMATION
  Report Type: Other
  Country: None (occurrence: IN)
  Receive Date: 20231004
  Receipt Date: 20231004
  Transmission Date: 20240110
  Serious: Yes (Other)
  Sender: FDA-Public Use
  Company Number: IN-Renata Limited-2146690

PATIENT
  Age: 24 Year
  Sex: Male

DRUGS (1)
  1. RISPERIDONE [Suspect]
     Active Substance: RISPERIDONE
     Indication: Acute psychosis
     Route: 065

REACTIONS (3)
  - Haemolysis [Recovering/Resolving]
  - Anaemia macrocytic [Recovering/Resolving]
  - Thrombocytopenia [Recovering/Resolving]
